FAERS Safety Report 10043498 (Version 2)
Quarter: 2014Q2

REPORT INFORMATION
  Report Type: Spontaneous
  Country: US (occurrence: US)
  Receive Date: 20140328
  Receipt Date: 20140519
  Transmission Date: 20141212
  Serious: No
  Sender: FDA-Public Use
  Company Number: US-PFIZER INC-2014087624

PATIENT
  Age: 68 Year
  Sex: Female
  Weight: 56 kg

DRUGS (7)
  1. LEVOXYL [Suspect]
     Indication: HYPOTHYROIDISM
     Dosage: 75 UG, UNK
     Route: 048
     Dates: start: 201402
  2. LEVOXYL [Suspect]
     Dosage: 88 UG, UNK
  3. LEVOXYL [Suspect]
     Dosage: 75 UG, 1X/DAY
     Dates: start: 201403
  4. LEVOXYL [Suspect]
     Dosage: 88 UG, 1X/DAY
     Dates: end: 20140325
  5. SYNTHROID [Suspect]
     Indication: HYPOTHYROIDISM
     Dosage: UNK
  6. PRAVACHOL [Concomitant]
     Indication: HYPERCHOLESTEROLAEMIA
     Dosage: UNK
     Dates: start: 200207
  7. AMBIEN [Concomitant]
     Indication: INSOMNIA
     Dosage: UNK
     Dates: start: 201310

REACTIONS (7)
  - Drug hypersensitivity [Recovered/Resolved]
  - Chest discomfort [Recovered/Resolved]
  - Throat tightness [Recovered/Resolved]
  - Paraesthesia [Unknown]
  - Muscle tightness [Recovered/Resolved]
  - Hypoaesthesia oral [Recovered/Resolved]
  - Dysphagia [Recovered/Resolved]
